FAERS Safety Report 7283480-6 (Version None)
Quarter: 2011Q1

REPORT INFORMATION
  Report Type: 
  Country: None (occurrence: None)
  Receive Date: 20110209
  Receipt Date: 20110128
  Transmission Date: 20110831
  Serious: Yes (Other)
  Sender: FDA-Public Use
  Company Number: PHHY2011US07260

PATIENT
  Sex: Female

DRUGS (4)
  1. VIVELLE [Suspect]
     Indication: HORMONE REPLACEMENT THERAPY
     Dosage: 0.1 MG, DAILY PER PATCH
     Route: 062
     Dates: start: 20091001
  2. CHANTIX [Suspect]
     Dosage: 1 MG, BID
     Dates: start: 20100801
  3. CHANTIX [Suspect]
     Dosage: UNK
  4. CHANTIX [Suspect]
     Indication: SMOKING CESSATION THERAPY
     Dosage: 0.5 MG, QD
     Route: 048
     Dates: start: 20100801, end: 20100801

REACTIONS (10)
  - TENDON RUPTURE [None]
  - FALL [None]
  - SWELLING FACE [None]
  - STRESS [None]
  - RASH [None]
  - ERYTHEMA [None]
  - PRURITUS GENERALISED [None]
  - SKIN BURNING SENSATION [None]
  - SKIN DISORDER [None]
  - ILL-DEFINED DISORDER [None]
